FAERS Safety Report 25488482 (Version 1)
Quarter: 2025Q2

REPORT INFORMATION
  Report Type: Report from Study
  Country: GR (occurrence: GR)
  Receive Date: 20250627
  Receipt Date: 20250627
  Transmission Date: 20250717
  Serious: Yes (Death, Hospitalization, Other)
  Sender: TAKEDA
  Company Number: GR-TAKEDA-2025TUS058684

PATIENT
  Age: 76 Year
  Sex: Male

DRUGS (1)
  1. HUMAN IMMUNOGLOBULIN G\HYALURONIDASE RECOMBINANT HUMAN [Suspect]
     Active Substance: HUMAN IMMUNOGLOBULIN G\HYALURONIDASE (HUMAN RECOMBINANT)
     Indication: Immunodeficiency
     Dosage: 400 MILLILITER, MONTHLY
     Dates: start: 20250204

REACTIONS (5)
  - Femoral neck fracture [Fatal]
  - Shoulder fracture [Fatal]
  - Plasma cell myeloma [Fatal]
  - Respiratory disorder [Fatal]
  - Malaise [Unknown]
